FAERS Safety Report 5774455-4 (Version None)
Quarter: 2008Q2

REPORT INFORMATION
  Report Type: 
  Country: None (occurrence: None)
  Receive Date: 20080616
  Receipt Date: 20080605
  Transmission Date: 20081010
  Serious: Yes (Other)
  Sender: FDA-Public Use
  Company Number: US-PFIZER INC-2008048118

PATIENT
  Sex: Male
  Weight: 86.2 kg

DRUGS (7)
  1. GEODON [Suspect]
     Indication: AGITATION
     Dates: start: 20080604, end: 20080604
  2. ATENOLOL [Concomitant]
     Indication: HYPERTENSION
  3. METOPROLOL [Concomitant]
     Indication: HYPERTENSION
  4. DICLOFENAC [Concomitant]
  5. LISINOPRIL [Concomitant]
     Indication: HYPERTENSION
  6. COUMADIN [Concomitant]
  7. HEPARIN [Concomitant]

REACTIONS (6)
  - ABNORMAL BEHAVIOUR [None]
  - CONFUSIONAL STATE [None]
  - DISORIENTATION [None]
  - HALLUCINATION, VISUAL [None]
  - INCOHERENT [None]
  - SPEECH DISORDER [None]
